FAERS Safety Report 5653636-4 (Version None)
Quarter: 2008Q1

REPORT INFORMATION
  Report Type: 
  Country: None (occurrence: None)
  Receive Date: 20080306
  Receipt Date: 20080228
  Transmission Date: 20080703
  Serious: Yes (Hospitalization)
  Sender: FDA-Public Use
  Company Number: FR-ELI_LILLY_AND_COMPANY-FR200802006925

PATIENT
  Age: 80 Year
  Sex: Female

DRUGS (5)
  1. FORTEO [Suspect]
     Indication: OSTEOPOROSIS
     Dosage: 20 UG, DAILY (1/D)
     Route: 058
     Dates: start: 20080119
  2. TAHOR [Concomitant]
  3. VASTAREL [Concomitant]
  4. UVEDOSE [Concomitant]
     Dosage: 1 D/F, OTHER
  5. CALCIUM [Concomitant]
     Dosage: 2 D/F, DAILY (1/D)

REACTIONS (2)
  - BRONCHITIS [None]
  - PALPITATIONS [None]
